FAERS Safety Report 9647402 (Version 1)
Quarter: 2013Q4

REPORT INFORMATION
  Report Type: Spontaneous
  Country: JP (occurrence: JP)
  Receive Date: 20131028
  Receipt Date: 20131028
  Transmission Date: 20140711
  Serious: Yes (Hospitalization)
  Sender: FDA-Public Use
  Company Number: JP-ROCHE-1293811

PATIENT
  Age: 81 Year
  Sex: Female

DRUGS (22)
  1. RITUXIMAB [Suspect]
     Indication: LYMPHOMA
     Route: 042
     Dates: start: 20130426
  2. RITUXIMAB [Suspect]
     Route: 042
     Dates: start: 20130520
  3. RITUXIMAB [Suspect]
     Route: 042
     Dates: start: 20130617
  4. RITUXIMAB [Suspect]
     Route: 042
     Dates: start: 20130716
  5. ONCOVIN [Suspect]
     Indication: LYMPHOMA
     Route: 042
     Dates: start: 20130426
  6. ONCOVIN [Suspect]
     Route: 042
     Dates: start: 20130520
  7. ONCOVIN [Suspect]
     Route: 042
     Dates: start: 20130617
  8. ONCOVIN [Suspect]
     Route: 042
     Dates: start: 20130716
  9. ADRIACIN [Suspect]
     Indication: LYMPHOMA
     Route: 042
     Dates: start: 20130426
  10. ADRIACIN [Suspect]
     Route: 042
     Dates: start: 20130520
  11. ADRIACIN [Suspect]
     Route: 042
     Dates: start: 20130617
  12. ADRIACIN [Suspect]
     Route: 042
     Dates: start: 20130716
  13. ENDOXAN [Suspect]
     Indication: LYMPHOMA
     Route: 042
     Dates: start: 20130426
  14. ENDOXAN [Suspect]
     Route: 042
     Dates: start: 20130520
  15. ENDOXAN [Suspect]
     Route: 042
     Dates: start: 20130617
  16. ENDOXAN [Suspect]
     Route: 042
     Dates: start: 20130716
  17. PREDONINE [Suspect]
     Indication: LYMPHOMA
     Route: 048
     Dates: start: 20130426
  18. PREDONINE [Suspect]
     Route: 048
     Dates: start: 20130520
  19. PREDONINE [Suspect]
     Route: 048
     Dates: start: 20130617
  20. PREDONINE [Suspect]
     Route: 048
     Dates: start: 20130716
  21. MEVALOTIN [Concomitant]
  22. NEXIUM [Concomitant]
     Route: 048

REACTIONS (1)
  - Alveolitis allergic [Recovering/Resolving]
